FAERS Safety Report 7805268-7 (Version None)
Quarter: 2011Q4

REPORT INFORMATION
  Report Type: 
  Country: None (occurrence: None)
  Receive Date: 20111010
  Receipt Date: 20110929
  Transmission Date: 20120403
  Serious: Yes (Other)
  Sender: FDA-Public Use
  Company Number: JP-PFIZER INC-2011239925

PATIENT
  Age: 85 Year
  Sex: Female

DRUGS (2)
  1. LIPITOR [Suspect]
     Dosage: 5 MG, 1X/DAY
     Route: 048
     Dates: end: 20100831
  2. LIPITOR [Suspect]
     Dosage: 5 MG, ALTERNATE DAY
     Route: 048
     Dates: start: 20100901

REACTIONS (2)
  - ASTHENIA [None]
  - MYALGIA [None]
